FAERS Safety Report 5157964-0 (Version None)
Quarter: 2006Q4

REPORT INFORMATION
  Report Type: 
  Country: None (occurrence: None)
  Receive Date: 20061127
  Receipt Date: 20061117
  Transmission Date: 20070319
  Serious: Yes (Hospitalization)
  Sender: FDA-Public Use
  Company Number: JP-ABBOTT-06P-087-0350695-00

PATIENT
  Age: 60 Year
  Sex: Male

DRUGS (10)
  1. CLARITHROMYCIN [Suspect]
     Indication: HELICOBACTER INFECTION
     Route: 048
     Dates: start: 20050101
  2. CLARITHROMYCIN [Suspect]
     Indication: GASTRITIS EROSIVE
  3. CLARITHROMYCIN [Suspect]
     Indication: GASTRIC HAEMORRHAGE
  4. LANSOPRAZOLE [Suspect]
     Indication: HELICOBACTER INFECTION
     Route: 048
     Dates: start: 20050101
  5. LANSOPRAZOLE [Suspect]
     Indication: GASTRITIS EROSIVE
  6. LANSOPRAZOLE [Suspect]
     Indication: GASTRIC HAEMORRHAGE
  7. AMOXICILLIN [Suspect]
     Indication: HELICOBACTER INFECTION
     Route: 048
     Dates: start: 20050101
  8. AMOXICILLIN [Suspect]
     Indication: GASTRIC HAEMORRHAGE
  9. AMOXICILLIN [Suspect]
     Indication: GASTRITIS EROSIVE
  10. DISOPYRAMIDE [Interacting]
     Indication: ARRHYTHMIA
     Dates: start: 19990101

REACTIONS (2)
  - DRUG INTERACTION [None]
  - HYPOGLYCAEMIA [None]
